FAERS Safety Report 8587880 (Version 4)
Quarter: 2013Q3

REPORT INFORMATION
  Report Type: Spontaneous
  Country: US (occurrence: US)
  Receive Date: 20120531
  Receipt Date: 20130923
  Transmission Date: 20140515
  Serious: Yes (Hospitalization, Congenital Anomaly, Other)
  Sender: FDA-Public Use
  Company Number: US-PFIZER INC-2012127094

PATIENT
  Sex: Female
  Weight: 2.4 kg

DRUGS (5)
  1. ZOLOFT [Suspect]
     Dosage: 50 MG, UNK
     Route: 064
     Dates: start: 20050824
  2. ZOLOFT [Suspect]
     Dosage: 100 MG, UNK
     Route: 064
     Dates: start: 20051122
  3. PRENATAL VITAMINS [Concomitant]
     Dosage: EVERY DAY
     Route: 064
  4. AMBIEN [Concomitant]
     Indication: INSOMNIA
     Dosage: 10 MG, BEDTIME
     Route: 064
  5. ZITHROMAX [Concomitant]
     Indication: SINUSITIS
     Dosage: 250 MG, 1X/DAY
     Route: 064
     Dates: end: 20061226

REACTIONS (11)
  - Maternal exposure timing unspecified [Unknown]
  - Ebstein^s anomaly [Unknown]
  - Neonatal respiratory distress syndrome [Unknown]
  - Sepsis neonatal [Unknown]
  - Atelectasis neonatal [Unknown]
  - Right atrial dilatation [Unknown]
  - Tricuspid valve incompetence [Unknown]
  - Ventricular hypoplasia [Unknown]
  - Dilatation ventricular [Unknown]
  - Atrial septal defect [Unknown]
  - Small for dates baby [Unknown]
